FAERS Safety Report 8522082-8 (Version None)
Quarter: 2012Q3

REPORT INFORMATION
  Report Type: 
  Country: None (occurrence: None)
  Receive Date: 20120719
  Receipt Date: 20120716
  Transmission Date: 20120928
  Serious: Yes (Other)
  Sender: FDA-Public Use
  Company Number: US-PFIZER INC-2012106307

PATIENT
  Sex: Female
  Weight: 71.2 kg

DRUGS (27)
  1. SINGULAIR [Concomitant]
     Indication: ASTHMA
     Dosage: 10 MG, AS NEEDED
  2. MAGNESIUM [Concomitant]
     Dosage: 500 MG, UNK
  3. DIFLUCAN [Concomitant]
     Dosage: 100 MG, UNK
  4. LYRICA [Suspect]
     Indication: FIBROMYALGIA
     Dosage: 150 MG, 2X/DAY
  5. PREDNISONE [Concomitant]
     Indication: ASTHMA
     Dosage: 10 MG, 1X/DAY
  6. XANAX [Concomitant]
     Dosage: 3 MG, 1X/DAY
  7. ALBUTEROL SULFATE [Concomitant]
     Indication: ASTHMA
     Dosage: 4 MG, 1X/DAY
  8. TOPIRAMATE [Concomitant]
     Indication: MIGRAINE
     Dosage: 200 MG, 2X/DAY
  9. RECLAST [Concomitant]
     Indication: OSTEOPOROSIS
     Dosage: UNK, YEARLY
  10. THEOPHYLLINE [Concomitant]
     Indication: ASTHMA
     Dosage: 300 MG, 1X/DAY
  11. TRICOR [Concomitant]
     Indication: BLOOD CHOLESTEROL INCREASED
     Dosage: 145 MG, DAILY
  12. VITAMIN B-12 [Concomitant]
     Dosage: 500 UG, 1X/DAY
  13. REGLAN [Concomitant]
     Dosage: 10 MG, AS NEEDED
  14. FUROSEMIDE [Concomitant]
     Indication: FLUID RETENTION
     Dosage: 40 MG, 1X/DAY
  15. ADVIL [Suspect]
     Indication: BONE DISORDER
     Dosage: 1200 MG, EVERY 6 HOURS
     Dates: start: 20120401
  16. OMEPRAZOLE [Concomitant]
     Indication: ULCER
     Dosage: 20 MG, 2X/DAY
  17. COLECALCIFEROL [Concomitant]
     Indication: VITAMIN D DEFICIENCY
     Dosage: 50000 IU, 3X/WEEK
  18. RAMIPRIL [Concomitant]
     Indication: HYPERTENSION
     Dosage: UNK
  19. RESTORIL [Concomitant]
     Dosage: 30 MG, 1X/DAY
  20. ADVAIR DISKUS 100/50 [Concomitant]
     Indication: ASTHMA
     Dosage: 500/50 MG, 2X/DAY
  21. COMBIVENT [Concomitant]
     Indication: ASTHMA
     Dosage: UNK, AS NEEDED
  22. CYMBALTA [Concomitant]
     Dosage: 60 MG, 1X/DAY
  23. KLOR-CON M20 [Concomitant]
     Dosage: 20 UG, 2X/DAY
  24. TRILIPIX [Concomitant]
     Dosage: 135 MG, 1X/DAY
  25. LYRICA [Suspect]
     Dosage: 150 MG IN THE MORNING AND 225 MG AT NIGHT
     Route: 048
     Dates: start: 20120629
  26. DUONEB [Concomitant]
     Indication: ASTHMA
     Dosage: UNK, AS NEEDED
  27. FLONASE [Concomitant]
     Indication: ASTHMA
     Dosage: UNK

REACTIONS (8)
  - VISUAL IMPAIRMENT [None]
  - IMPAIRED DRIVING ABILITY [None]
  - BONE DISORDER [None]
  - CEREBROVASCULAR ACCIDENT [None]
  - PAIN [None]
  - HEADACHE [None]
  - INJURY [None]
  - SKELETAL INJURY [None]
